FAERS Safety Report 26000568 (Version 1)
Quarter: 2025Q4

REPORT INFORMATION
  Report Type: Spontaneous
  Country: US (occurrence: None)
  Receive Date: 20251104
  Receipt Date: 20251104
  Transmission Date: 20260117
  Serious: Yes (Disabling, Other)
  Sender: FDA-CTU
  Company Number: None

PATIENT
  Age: 49 Year
  Sex: Female
  Weight: 58.5 kg

DRUGS (1)
  1. SERTRALINE [Suspect]
     Active Substance: SERTRALINE HYDROCHLORIDE
     Indication: Major depression
     Dosage: FREQUENCY : DAILY;?
     Route: 048

REACTIONS (21)
  - Therapy cessation [None]
  - Emotional disorder [None]
  - Akathisia [None]
  - Palpitations [None]
  - Chest discomfort [None]
  - Chest discomfort [None]
  - Middle insomnia [None]
  - Impaired work ability [None]
  - Panic reaction [None]
  - Socioeconomic precarity [None]
  - Dizziness [None]
  - Vertigo [None]
  - Hyperacusis [None]
  - Photophobia [None]
  - Decreased appetite [None]
  - Mental impairment [None]
  - Crying [None]
  - Panic attack [None]
  - Fatigue [None]
  - Syncope [None]
  - General physical health deterioration [None]

NARRATIVE: CASE EVENT DATE: 20240101
